FAERS Safety Report 5667881-5 (Version None)
Quarter: 2008Q1

REPORT INFORMATION
  Report Type: 
  Country: None (occurrence: None)
  Receive Date: 20080315
  Receipt Date: 20080206
  Transmission Date: 20080703
  Serious: No
  Sender: FDA-Public Use
  Company Number: US-ABBOTT-08P-163-0437268-00

PATIENT
  Sex: Male
  Weight: 90.9 kg

DRUGS (3)
  1. HUMIRA [Suspect]
     Indication: PSORIATIC ARTHROPATHY
     Route: 058
     Dates: start: 20080119
  2. HYDROXYCHLOROQUINE PHOSPHATE [Concomitant]
     Indication: PSORIATIC ARTHROPATHY
  3. METHYLPREDNISOLONE [Concomitant]
     Indication: PSORIATIC ARTHROPATHY

REACTIONS (4)
  - INJECTION SITE ERYTHEMA [None]
  - INJECTION SITE INDURATION [None]
  - INJECTION SITE PRURITUS [None]
  - NIGHT SWEATS [None]
